FAERS Safety Report 8159807-X (Version None)
Quarter: 2012Q1

REPORT INFORMATION
  Report Type: 
  Country: None (occurrence: None)
  Receive Date: 20120223
  Receipt Date: 20120220
  Transmission Date: 20120608
  Serious: Yes (Hospitalization)
  Sender: FDA-Public Use
  Company Number: JP-BAYER-2012-004700

PATIENT
  Age: 76 Year
  Sex: Male
  Weight: 64 kg

DRUGS (11)
  1. ADALAT CC [Concomitant]
     Dosage: 20 MG, BID
     Route: 048
  2. GOODMIN [Concomitant]
     Indication: INSOMNIA
     Dosage: 0.25 MG, PRN
     Route: 048
  3. NEXAVAR [Suspect]
     Indication: HEPATIC NEOPLASM MALIGNANT
     Dosage: 200 MG, BID
     Route: 048
     Dates: start: 20100416, end: 20101021
  4. LANSOPRAZOLE [Concomitant]
     Dosage: 15 MG, QD
     Route: 048
  5. ZETIA [Concomitant]
     Dosage: 10 MG, QD
     Route: 048
  6. NEXAVAR [Suspect]
     Dosage: 200 MG, UNK
     Route: 048
     Dates: end: 20101001
  7. NEXAVAR [Suspect]
     Dosage: 400 MG, UNK
     Route: 048
  8. URSO 250 [Concomitant]
     Dosage: 100 MG, BID
     Route: 048
  9. DOGMATYL [Concomitant]
     Dosage: 50 MG, BID
     Route: 048
  10. PYDOXAL [Concomitant]
     Dosage: 20 MG, BID
     Route: 048
  11. LIVACT [Concomitant]
     Dosage: 4.15 G, TID
     Route: 048

REACTIONS (2)
  - CEREBRAL INFARCTION [None]
  - GASTROINTESTINAL HAEMORRHAGE [None]
